FAERS Safety Report 12327801 (Version 1)
Quarter: 2016Q2

REPORT INFORMATION
  Report Type: Spontaneous
  Country: US (occurrence: US)
  Receive Date: 20160503
  Receipt Date: 20160503
  Transmission Date: 20160815
  Serious: No
  Sender: FDA-Public Use
  Company Number: US-ASTRAZENECA-2016SE43134

PATIENT
  Age: 465 Month
  Sex: Female
  Weight: 52.2 kg

DRUGS (9)
  1. DEPAKOTE [Concomitant]
     Active Substance: DIVALPROEX SODIUM
     Indication: BIPOLAR DISORDER
     Route: 048
     Dates: start: 201601
  2. ADVIL [Concomitant]
     Active Substance: IBUPROFEN
     Indication: HEADACHE
     Dosage: AS REQUIRED
     Route: 048
  3. SEROQUEL XR [Suspect]
     Active Substance: QUETIAPINE FUMARATE
     Indication: BIPOLAR DISORDER
     Route: 048
     Dates: start: 201602
  4. SEROQUEL XR [Suspect]
     Active Substance: QUETIAPINE FUMARATE
     Indication: SLEEP DISORDER
     Route: 048
     Dates: start: 201602
  5. SEROQUEL XR [Suspect]
     Active Substance: QUETIAPINE FUMARATE
     Indication: BIPOLAR DISORDER
     Route: 048
     Dates: start: 20160411, end: 201604
  6. SEROQUEL XR [Suspect]
     Active Substance: QUETIAPINE FUMARATE
     Indication: BIPOLAR DISORDER
     Route: 048
  7. SEROQUEL XR [Suspect]
     Active Substance: QUETIAPINE FUMARATE
     Indication: SLEEP DISORDER
     Route: 048
  8. SEROQUEL XR [Suspect]
     Active Substance: QUETIAPINE FUMARATE
     Indication: SLEEP DISORDER
     Route: 048
     Dates: start: 20160411, end: 201604
  9. MULTIVITAMINS [Concomitant]
     Active Substance: VITAMINS
     Route: 048

REACTIONS (9)
  - Somnolence [Unknown]
  - Intentional product misuse [Unknown]
  - Disturbance in attention [Unknown]
  - Gait disturbance [Unknown]
  - Product use issue [Unknown]
  - Ear discomfort [Unknown]
  - Weight increased [Unknown]
  - Tinnitus [Unknown]
  - Memory impairment [Unknown]

NARRATIVE: CASE EVENT DATE: 201602
